FAERS Safety Report 8186111-6 (Version None)
Quarter: 2012Q1

REPORT INFORMATION
  Report Type: 
  Country: None (occurrence: None)
  Receive Date: 20120301
  Receipt Date: 20120221
  Transmission Date: 20120608
  Serious: Yes (Other)
  Sender: FDA-Public Use
  Company Number: AUR-APL-2012-01095

PATIENT
  Age: 26 Year
  Sex: Male

DRUGS (1)
  1. AMOXICILLIN [Suspect]
     Indication: CHRONIC SINUSITIS
     Dosage: (3 DOSAGE FORMS,1 D) ,

REACTIONS (7)
  - INFECTION [None]
  - SKIN DISCOLOURATION [None]
  - CRYING [None]
  - VIITH NERVE PARALYSIS [None]
  - PRODUCT QUALITY ISSUE [None]
  - POISONING [None]
  - THINKING ABNORMAL [None]
